FAERS Safety Report 15000723 (Version 1)
Quarter: 2018Q2

REPORT INFORMATION
  Report Type: Spontaneous
  Country: ZA (occurrence: ZA)
  Receive Date: 20180612
  Receipt Date: 20180612
  Transmission Date: 20180711
  Serious: Yes (Hospitalization)
  Sender: FDA-Public Use
  Company Number: ZA-PFIZER INC-2018234516

PATIENT
  Age: 87 Year
  Sex: Female

DRUGS (7)
  1. ISMO [Suspect]
     Active Substance: ISOSORBIDE MONONITRATE
     Dosage: 20 MG, UNK
  2. PHARMAPRESS /00574902/ [Suspect]
     Active Substance: ENALAPRIL MALEATE
     Dosage: 10 MG, UNK
  3. DETRUNORM [Suspect]
     Active Substance: PROPIVERINE HYDROCHLORIDE
     Dosage: 15 MG, UNK
  4. LOMANOR [Suspect]
     Active Substance: AMLODIPINE BESYLATE
     Dosage: 5 MG, UNK
  5. WARFARIN [Suspect]
     Active Substance: WARFARIN
     Dosage: 5 MG, UNK
  6. ELTROXIN [Suspect]
     Active Substance: LEVOTHYROXINE
     Dosage: 100 UG, UNK
  7. NEXIAM /01479302/ [Suspect]
     Active Substance: ESOMEPRAZOLE MAGNESIUM
     Dosage: 40 MG, UNK

REACTIONS (1)
  - Haemorrhage [Recovered/Resolved]
